FAERS Safety Report 25733146 (Version 2)
Quarter: 2025Q4

REPORT INFORMATION
  Report Type: Report from Study
  Country: US (occurrence: US)
  Receive Date: 20250828
  Receipt Date: 20251113
  Transmission Date: 20260117
  Serious: Yes (Other)
  Sender: ACADIA PHARMACEUTICALS
  Company Number: US-ACADIA PHARMACEUTICALS INC.-ACA-2025-PIM-009538

PATIENT
  Age: 88 Year
  Sex: Male

DRUGS (19)
  1. NUPLAZID [Suspect]
     Active Substance: PIMAVANSERIN TARTRATE
     Indication: Product used for unknown indication
     Dosage: 34 MILLIGRAM, QD
     Route: 048
     Dates: start: 20250207
  2. ASPIRIN [Concomitant]
     Active Substance: ASPIRIN
  3. ATORVASTATIN [Concomitant]
     Active Substance: ATORVASTATIN
  4. CARBIDOPA\LEVODOPA [Concomitant]
     Active Substance: CARBIDOPA\LEVODOPA
  5. CARVEDILOL [Concomitant]
     Active Substance: CARVEDILOL
  6. CLONIDINE [Concomitant]
     Active Substance: CLONIDINE
  7. CLOPIDOGREL [Concomitant]
     Active Substance: CLOPIDOGREL BISULFATE
  8. DIGOXIN [Concomitant]
     Active Substance: DIGOXIN
  9. DONEPEZIL [Concomitant]
     Active Substance: DONEPEZIL
  10. FLAXSEED [Concomitant]
     Active Substance: FLAX SEED
  11. GABAPENTIN [Concomitant]
     Active Substance: GABAPENTIN
  12. MAGNESIUM [Concomitant]
     Active Substance: MAGNESIUM
  13. MELATONIN [Concomitant]
     Active Substance: MELATONIN
  14. ADULT MULTIVITAMIN [Concomitant]
  15. TEA TREE OIL [Concomitant]
     Active Substance: TEA TREE OIL
  16. TIZANIDINE [Concomitant]
     Active Substance: TIZANIDINE
  17. TRIHEXYPHEN [Concomitant]
  18. TYLENOL [Concomitant]
     Active Substance: ACETAMINOPHEN
  19. VITAMIN D NOS [Concomitant]
     Active Substance: CHOLECALCIFEROL\ERGOCALCIFEROL
     Dosage: 2000 UNIT

REACTIONS (4)
  - Hallucination [Not Recovered/Not Resolved]
  - Abnormal behaviour [Not Recovered/Not Resolved]
  - Condition aggravated [Not Recovered/Not Resolved]
  - Confusional state [Not Recovered/Not Resolved]

NARRATIVE: CASE EVENT DATE: 20251106
